FAERS Safety Report 4623902-X (Version None)
Quarter: 2005Q1

REPORT INFORMATION
  Report Type: 
  Country: None (occurrence: None)
  Receive Date: 20050331
  Receipt Date: 20050131
  Transmission Date: 20050727
  Serious: Yes (Hospitalization)
  Sender: FDA-Public Use
  Company Number: US-BOEHRINGER INGELHEIM PHARMACEUTICALS, INC.-2005-BP-01489BP

PATIENT
  Age: 80 Year
  Sex: Female

DRUGS (12)
  1. FLOMAX [Suspect]
     Indication: URINARY TRACT INFECTION
     Route: 048
  2. PREMARIN [Concomitant]
  3. LASIX [Concomitant]
  4. TIAZAC [Concomitant]
     Dosage: DAILY
  5. LEVSIN PB [Concomitant]
  6. CELEBREX [Concomitant]
  7. IMDUR [Concomitant]
  8. TRANXENE [Concomitant]
  9. NEXIUM [Concomitant]
  10. MICRO-K [Concomitant]
  11. CELEXA [Concomitant]
  12. LIBRAX [Concomitant]

REACTIONS (2)
  - BLOOD PRESSURE ABNORMAL [None]
  - CARDIAC FAILURE CONGESTIVE [None]
